FAERS Safety Report 5344010-9 (Version None)
Quarter: 2007Q2

REPORT INFORMATION
  Report Type: 
  Country: None (occurrence: None)
  Receive Date: 20070604
  Receipt Date: 20070528
  Transmission Date: 20071010
  Serious: Yes (Hospitalization, Other)
  Sender: FDA-Public Use
  Company Number: AU-AVENTIS-200714748GDDC

PATIENT
  Age: 65 Year
  Sex: Male

DRUGS (8)
  1. LANTUS [Suspect]
  2. AUTOPEN INSULIN INJECTION PEN [Suspect]
  3. PLAVIX [Concomitant]
     Dosage: DOSE: UNK
  4. NORVASC [Concomitant]
     Dosage: DOSE: UNK
  5. ATENOLOL [Concomitant]
     Dosage: DOSE: UNK
  6. ZOLOFT [Concomitant]
     Dosage: DOSE: UNK
  7. METFORMIN HCL [Concomitant]
     Dosage: DOSE: UNK
  8. AVANDIA [Concomitant]
     Dosage: DOSE: UNK

REACTIONS (2)
  - GANGRENE [None]
  - HYPOGLYCAEMIA [None]
